FAERS Safety Report 11179718 (Version 3)
Quarter: 2015Q3

REPORT INFORMATION
  Report Type: Report from Study
  Country: US (occurrence: US)
  Receive Date: 20150611
  Receipt Date: 20150714
  Transmission Date: 20151125
  Serious: Yes (Hospitalization)
  Sender: FDA-Public Use
  Company Number: US-ROCHE-1590379

PATIENT
  Age: 55 Year
  Sex: Male
  Weight: 99.3 kg

DRUGS (6)
  1. BENDAMUSTINE [Suspect]
     Active Substance: BENDAMUSTINE
     Indication: CHRONIC LYMPHOCYTIC LEUKAEMIA
     Dosage: ON 03/JUN/2015, THE PATIENT RECEIVED THE MOST RECENT DOSE (194MG) OF BENDAMUSTINE PRIOR TO ONSET OF
     Route: 042
  2. ELITEK [Concomitant]
     Active Substance: RASBURICASE
     Route: 042
     Dates: start: 20150601
  3. BACTRIM DS [Concomitant]
     Active Substance: SULFAMETHOXAZOLE\TRIMETHOPRIM
     Dosage: DOSE: 800/160MG
     Route: 065
  4. OBINUTUZUMAB [Suspect]
     Active Substance: OBINUTUZUMAB
     Indication: CHRONIC LYMPHOCYTIC LEUKAEMIA
     Dosage: ON 02/JUN/2015, THE PATIENT RECEIVED THE MOST RECENT DOSE (900MG) OF OBINUTUZUMAB PRIOR TO ONSET OF
     Route: 041
  5. PEPCID AC [Concomitant]
     Active Substance: FAMOTIDINE
     Route: 065
  6. VALTREX [Concomitant]
     Active Substance: VALACYCLOVIR HYDROCHLORIDE
     Route: 065

REACTIONS (2)
  - Febrile neutropenia [Recovered/Resolved]
  - Tumour lysis syndrome [Recovered/Resolved]

NARRATIVE: CASE EVENT DATE: 20150605
